FAERS Safety Report 24069853 (Version 1)
Quarter: 2024Q3

REPORT INFORMATION
  Report Type: Spontaneous
  Country: ID (occurrence: ID)
  Receive Date: 20240710
  Receipt Date: 20240710
  Transmission Date: 20241016
  Serious: No
  Sender: ROCHE
  Company Number: ID-ROCHE-3503727

PATIENT
  Age: 52 Year
  Sex: Male

DRUGS (1)
  1. ALECENSA [Suspect]
     Active Substance: ALECTINIB HYDROCHLORIDE
     Indication: Product used for unknown indication
     Dosage: DOSE - 2X 600 MG
     Route: 065
     Dates: start: 20231229

REACTIONS (2)
  - Dysgeusia [Unknown]
  - Dyspnoea [Unknown]
